FAERS Safety Report 16803343 (Version 2)
Quarter: 2019Q3

REPORT INFORMATION
  Report Type: Spontaneous
  Country: FR (occurrence: FR)
  Receive Date: 20190913
  Receipt Date: 20190927
  Transmission Date: 20191005
  Serious: Yes (Other)
  Sender: FDA-Public Use
  Company Number: FR-AUROBINDO-AUR-APL-2019-059063

PATIENT

DRUGS (4)
  1. MOXIFLOXACIN (MOXIFLOXACIN) [Suspect]
     Active Substance: MOXIFLOXACIN
     Indication: ATYPICAL MYCOBACTERIAL INFECTION
     Dosage: 400 MILLIGRAM, ONCE A DAY
     Route: 048
     Dates: start: 20190718, end: 20190731
  2. CLARITHROMYCIN ARROW FILM-COATED TABLET 500MG [Suspect]
     Active Substance: CLARITHROMYCIN
     Indication: ATYPICAL MYCOBACTERIAL INFECTION
     Dosage: 1500 MILLIGRAM, ONCE A DAY
     Route: 048
     Dates: start: 20190717, end: 20190731
  3. ANSATIPINE [Suspect]
     Active Substance: RIFABUTIN
     Indication: ATYPICAL MYCOBACTERIAL INFECTION
     Dosage: 300 MILLIGRAM, ONCE A DAY
     Route: 048
     Dates: start: 20190715, end: 20190731
  4. LINEZOLIDE ARROW 600 MG FILM COATED TABLET [Suspect]
     Active Substance: LINEZOLID
     Indication: ATYPICAL MYCOBACTERIAL INFECTION
     Dosage: 600 MILLIGRAM, ONCE A DAY
     Route: 065
     Dates: start: 20190716, end: 20190731

REACTIONS (2)
  - Cholestasis [Recovered/Resolved]
  - Hepatocellular injury [Recovered/Resolved]

NARRATIVE: CASE EVENT DATE: 20190730
